FAERS Safety Report 23411821 (Version 1)
Quarter: 2024Q1

REPORT INFORMATION
  Report Type: Spontaneous
  Country: CN (occurrence: None)
  Receive Date: 20240117
  Receipt Date: 20240117
  Transmission Date: 20240409
  Serious: Yes (Other)
  Sender: FDA-Public Use
  Company Number: 2024A010041

PATIENT
  Age: 88 Year
  Sex: Male
  Weight: 64.5 kg

DRUGS (2)
  1. ROSUVASTATIN CALCIUM [Suspect]
     Active Substance: ROSUVASTATIN CALCIUM
     Indication: Therapeutic procedure
     Route: 048
     Dates: start: 20131201, end: 20231127
  2. ROSUVASTATIN CALCIUM [Suspect]
     Active Substance: ROSUVASTATIN CALCIUM
     Indication: Lipids increased
     Route: 048
     Dates: start: 20131201, end: 20231127

REACTIONS (1)
  - Drug-induced liver injury [Recovering/Resolving]

NARRATIVE: CASE EVENT DATE: 20231127
